FAERS Safety Report 8424244-7 (Version None)
Quarter: 2012Q2

REPORT INFORMATION
  Report Type: 
  Country: None (occurrence: None)
  Receive Date: 20120608
  Receipt Date: 20111214
  Transmission Date: 20120825
  Serious: No
  Sender: FDA-Public Use
  Company Number: US-ASTRAZENECA-2011SE75941

PATIENT
  Sex: Female

DRUGS (4)
  1. PULMICORT FLEXHALER [Suspect]
     Indication: COUGH
     Route: 055
  2. PREDNISONE [Concomitant]
     Indication: INFLAMMATION
  3. PREDNISONE [Concomitant]
     Indication: COUGH
  4. PULMICORT FLEXHALER [Suspect]
     Indication: INFLAMMATION
     Route: 055

REACTIONS (3)
  - DRUG DOSE OMISSION [None]
  - ASTHMA [None]
  - OFF LABEL USE [None]
